FAERS Safety Report 4765793-2 (Version None)
Quarter: 2005Q3

REPORT INFORMATION
  Report Type: 
  Country: None (occurrence: None)
  Receive Date: 20050906
  Receipt Date: 20050824
  Transmission Date: 20060218
  Serious: Yes (Other)
  Sender: FDA-Public Use
  Company Number: 2005112127

PATIENT
  Age: 64 Year
  Sex: Male

DRUGS (3)
  1. VIAGRA [Suspect]
     Indication: ERECTILE DYSFUNCTION
     Dosage: 100 MG (100 MG, UNKNOWN), ORAL
     Route: 048
     Dates: start: 20050727, end: 20050727
  2. EDEX (ALPROSTADIL) [Concomitant]
  3. ACETAMINOPHEN [Concomitant]

REACTIONS (3)
  - HEADACHE [None]
  - HEPATITIS [None]
  - ISCHAEMIC HEPATITIS [None]
